FAERS Safety Report 13205782 (Version 1)
Quarter: 2017Q1

REPORT INFORMATION
  Report Type: Spontaneous
  Country: JP (occurrence: JP)
  Receive Date: 20170209
  Receipt Date: 20170209
  Transmission Date: 20170428
  Serious: Yes (Death)
  Sender: FDA-Public Use
  Company Number: JP-BIOCRYST PHARMACEUTICALS, INC.-2017BCR00025

PATIENT
  Age: 82 Year
  Sex: Female

DRUGS (12)
  1. TEPRENONE [Concomitant]
     Active Substance: TEPRENONE
     Dosage: UNK
     Route: 048
     Dates: end: 20170117
  2. LONASEN [Concomitant]
     Active Substance: BLONANSERIN
     Dosage: UNK
     Route: 048
     Dates: end: 20170117
  3. AKINETON [Concomitant]
     Active Substance: BIPERIDEN HYDROCHLORIDE
     Dosage: UNK
     Route: 048
     Dates: end: 20170117
  4. BENZALIN [Concomitant]
     Active Substance: NITRAZEPAM
     Dosage: UNK
     Route: 048
     Dates: end: 20170117
  5. EVISTA [Concomitant]
     Active Substance: RALOXIFENE HYDROCHLORIDE
     Dosage: UNK
     Route: 048
     Dates: end: 20170117
  6. CELECOX [Concomitant]
     Active Substance: CELECOXIB
     Dosage: UNK
     Route: 048
     Dates: end: 20170117
  7. ROZEREM [Concomitant]
     Active Substance: RAMELTEON
     Dosage: UNK
     Route: 048
     Dates: end: 20170117
  8. RAPIACTA [Suspect]
     Active Substance: PERAMIVIR
     Dosage: UNK
     Dates: start: 20170116, end: 20170116
  9. WARKMIN [Concomitant]
     Active Substance: ALFACALCIDOL
     Dosage: UNK
     Route: 048
  10. SERENACE [Concomitant]
     Active Substance: HALOPERIDOL
     Dosage: UNK
     Route: 048
     Dates: end: 20170117
  11. MAGMITT [Concomitant]
     Active Substance: MAGNESIUM OXIDE
     Dosage: UNK
     Route: 048
     Dates: end: 20170117
  12. LEVOTOMIN [Concomitant]
     Active Substance: LEVOMEPROMAZINE
     Dosage: UNK
     Route: 048
     Dates: end: 20170117

REACTIONS (3)
  - Hepatic function abnormal [Fatal]
  - Disseminated intravascular coagulation [Fatal]
  - Renal impairment [Fatal]

NARRATIVE: CASE EVENT DATE: 20170117
